FAERS Safety Report 7428485-7 (Version None)
Quarter: 2011Q2

REPORT INFORMATION
  Report Type: 
  Country: None (occurrence: None)
  Receive Date: 20110413
  Receipt Date: 20110328
  Transmission Date: 20111010
  Serious: Yes (Other)
  Sender: FDA-Public Use
  Company Number: 2011040033

PATIENT
  Age: 27 Year
  Sex: Female

DRUGS (2)
  1. MESALAMINE [Suspect]
     Indication: CROHN'S DISEASE
  2. LANSOPRAZOLE [Concomitant]

REACTIONS (2)
  - UNEVALUABLE EVENT [None]
  - ALVEOLITIS ALLERGIC [None]
